FAERS Safety Report 22000175 (Version 17)
Quarter: 2025Q1

REPORT INFORMATION
  Report Type: Spontaneous
  Country: IN (occurrence: IN)
  Receive Date: 20230216
  Receipt Date: 20250312
  Transmission Date: 20250409
  Serious: Yes (Hospitalization, Other)
  Sender: PFIZER
  Company Number: IN-PFIZER INC-202200820850

PATIENT
  Age: 66 Year
  Sex: Female
  Weight: 46.7 kg

DRUGS (5)
  1. LORLATINIB [Suspect]
     Active Substance: LORLATINIB
     Indication: Non-small cell lung cancer
     Dosage: 100 MG, 1X/DAY(ONCE A DAY)
     Dates: start: 202103
  2. LORLATINIB [Suspect]
     Active Substance: LORLATINIB
     Dosage: 100 MG, 1X/DAY
     Route: 048
     Dates: start: 20220328
  3. FUROSEMIDE\SPIRONOLACTONE [Concomitant]
     Active Substance: FUROSEMIDE\SPIRONOLACTONE
     Dosage: UNK UNK, 1X/DAY
     Dates: start: 202203
  4. CHOLESTEROL [Concomitant]
     Active Substance: CHOLESTEROL
  5. ROSUVASTATIN CALCIUM [Concomitant]
     Active Substance: ROSUVASTATIN CALCIUM
     Dosage: UNK, 1X/DAY

REACTIONS (32)
  - Blood cholesterol increased [Recovered/Resolved]
  - Hypercapnia [Unknown]
  - Pyrexia [Unknown]
  - Hepatitis C [Unknown]
  - Infective pericardial effusion [Unknown]
  - Pericarditis [Unknown]
  - Haemoglobin decreased [Unknown]
  - Oedema peripheral [Not Recovered/Not Resolved]
  - Aspartate aminotransferase increased [Unknown]
  - Alanine aminotransferase increased [Unknown]
  - Neutrophil percentage increased [Unknown]
  - Blood triglycerides increased [Unknown]
  - Low density lipoprotein increased [Unknown]
  - Platelet count decreased [Unknown]
  - Blood albumin decreased [Unknown]
  - Very low density lipoprotein increased [Unknown]
  - Peripheral swelling [Not Recovered/Not Resolved]
  - Sensory disturbance [Not Recovered/Not Resolved]
  - Weight increased [Recovering/Resolving]
  - Weight decreased [Unknown]
  - Mean cell volume decreased [Unknown]
  - Pleural effusion [Unknown]
  - Chest X-ray abnormal [Unknown]
  - C-reactive protein increased [Unknown]
  - Protein total decreased [Unknown]
  - Adrenal adenoma [Unknown]
  - Blood urea increased [Unknown]
  - High density lipoprotein increased [Unknown]
  - Blood thyroid stimulating hormone increased [Unknown]
  - Blood pressure systolic increased [Unknown]
  - Hypotension [Unknown]
  - Wheezing [Unknown]

NARRATIVE: CASE EVENT DATE: 20210701
